FAERS Safety Report 26197000 (Version 1)
Quarter: 2025Q4

REPORT INFORMATION
  Report Type: Spontaneous
  Country: JP (occurrence: JP)
  Receive Date: 20251224
  Receipt Date: 20251224
  Transmission Date: 20260117
  Serious: Yes (Hospitalization)
  Sender: MERCK SHARP & DOHME LLC
  Company Number: JP-009507513-2363946

PATIENT
  Age: 42 Year
  Sex: Female

DRUGS (5)
  1. CILASTATIN SODIUM\IMIPENEM [Suspect]
     Active Substance: CILASTATIN SODIUM\IMIPENEM
     Indication: Anti-infective therapy
     Dosage: FROM THE EIGHTH HOSPITAL DAY
     Route: 033
  2. MINOCYCLINE [Concomitant]
     Active Substance: MINOCYCLINE HYDROCHLORIDE
     Indication: Anti-infective therapy
  3. CEFEPIME [Concomitant]
     Active Substance: CEFEPIME HYDROCHLORIDE
     Indication: Anti-infective therapy
     Dosage: FROM THE DAY OF HOSPITAL ADMISSION TO THE SEVENTH HOSPITAL DAY
  4. VANCOMYCIN [Concomitant]
     Active Substance: VANCOMYCIN
     Indication: Anti-infective therapy
     Dosage: FROM THE DAY OF HOSPITAL ADMISSION TO THE SEVENTH HOSPITAL DAY
     Route: 033
  5. AZITHROMYCIN [Concomitant]
     Active Substance: AZITHROMYCIN
     Indication: Anti-infective therapy
     Dosage: FROM THE EIGHTH HOSPITAL DAY

REACTIONS (2)
  - Toxic encephalopathy [Recovered/Resolved]
  - Incorrect route of product administration [Unknown]
